FAERS Safety Report 6427676-1 (Version None)
Quarter: 2009Q4

REPORT INFORMATION
  Report Type: 
  Country: None (occurrence: None)
  Receive Date: 20091105
  Receipt Date: 20091028
  Transmission Date: 20100525
  Serious: Yes (Other)
  Sender: FDA-Public Use
  Company Number: ES-RANBAXY-2009RR-28878

PATIENT

DRUGS (7)
  1. IBUPROFEN [Suspect]
  2. PARACETAMOL [Suspect]
     Dosage: UNK MG, UNK
     Route: 048
  3. ETORICOXIB [Suspect]
     Route: 048
  4. DICLOFENAC [Suspect]
  5. ACECLOFENAC [Suspect]
  6. INDOMETHACIN [Suspect]
  7. PIROXICAM [Suspect]

REACTIONS (1)
  - OEDEMA [None]
